FAERS Safety Report 5821509-X (Version None)
Quarter: 2008Q3

REPORT INFORMATION
  Report Type: 
  Country: None (occurrence: None)
  Receive Date: 20080724
  Receipt Date: 20080716
  Transmission Date: 20090109
  Serious: Yes (Other)
  Sender: FDA-Public Use
  Company Number: ES-AMGEN-UK295499

PATIENT
  Age: 72 Year
  Sex: Female

DRUGS (6)
  1. ARANESP [Suspect]
     Indication: RENAL FAILURE CHRONIC
     Route: 058
     Dates: start: 20070727, end: 20070904
  2. PANTOPRAZOLE SODIUM [Concomitant]
     Route: 048
     Dates: end: 20070904
  3. DEPAKENE [Concomitant]
     Route: 048
  4. NOLOTIL /SPA/ [Concomitant]
     Route: 048
  5. PROGRAF [Concomitant]
     Route: 048
  6. ROCALTROL [Concomitant]
     Route: 048
     Dates: end: 20070904

REACTIONS (1)
  - EOSINOPHILIA [None]
